FAERS Safety Report 7301020-X (Version None)
Quarter: 2011Q1

REPORT INFORMATION
  Report Type: 
  Country: None (occurrence: None)
  Receive Date: 20110218
  Receipt Date: 20110210
  Transmission Date: 20110831
  Serious: Yes (Other)
  Sender: FDA-Public Use
  Company Number: FR-SANOFI-AVENTIS-2011SA008604

PATIENT
  Age: 90 Year
  Sex: Female

DRUGS (4)
  1. ESIDRIX [Suspect]
     Route: 048
     Dates: start: 20101008
  2. ENALAPRIL [Suspect]
     Route: 048
     Dates: start: 20100622
  3. CORDARONE [Concomitant]
     Dosage: 5 DAYS IN A WEEK
     Route: 048
  4. LASIX [Suspect]
     Route: 048
     Dates: start: 20100930, end: 20101009

REACTIONS (3)
  - FACIAL BONES FRACTURE [None]
  - FALL [None]
  - HYPONATRAEMIA [None]
